FAERS Safety Report 12882100 (Version 1)
Quarter: 2016Q4

REPORT INFORMATION
  Report Type: Spontaneous
  Country: MX (occurrence: MX)
  Receive Date: 20161025
  Receipt Date: 20161025
  Transmission Date: 20170207
  Serious: Yes (Hospitalization, Other)
  Sender: FDA-Public Use
  Company Number: MX-MYLANLABS-2016M1045648

PATIENT

DRUGS (4)
  1. RIFAMPICIN [Suspect]
     Active Substance: RIFAMPIN
     Indication: DISSEMINATED TUBERCULOSIS
     Dosage: 150 MG, 6 TIMES A WEEK FOR 10 WEEKS
     Route: 065
  2. ETHAMBUTOL [Suspect]
     Active Substance: ETHAMBUTOL HYDROCHLORIDE
     Indication: DISSEMINATED TUBERCULOSIS
     Dosage: 300MG, 6 TIMES A WEEK FOR 10 WEEKS
     Route: 065
  3. ISONIAZID. [Suspect]
     Active Substance: ISONIAZID
     Indication: DISSEMINATED TUBERCULOSIS
     Dosage: 75 MG, 6 TIMES A WEEK FOR 10 WEEKS
     Route: 065
  4. PYRAZINAMIDE. [Suspect]
     Active Substance: PYRAZINAMIDE
     Indication: DISSEMINATED TUBERCULOSIS
     Dosage: 400MG, 6 TIMES A WEEK FOR 10 WEEKS
     Route: 065

REACTIONS (3)
  - Intestinal obstruction [Recovering/Resolving]
  - Pericardial effusion [Unknown]
  - Paradoxical drug reaction [Recovering/Resolving]
